FAERS Safety Report 4470108-3 (Version None)
Quarter: 2004Q3

REPORT INFORMATION
  Report Type: 
  Country: None (occurrence: None)
  Receive Date: 20040910
  Receipt Date: 20040802
  Transmission Date: 20050211
  Serious: No
  Sender: FDA-Public Use
  Company Number: 2004-00308

PATIENT
  Age: 70 Year
  Sex: Male
  Weight: 108.8 kg

DRUGS (1)
  1. VELCADE [Suspect]
     Indication: MANTLE CELL LYMPHOMA
     Dates: start: 20040601, end: 20040701

REACTIONS (2)
  - DISEASE PROGRESSION [None]
  - NEUROPATHY PERIPHERAL [None]
